FAERS Safety Report 5032876-1 (Version None)
Quarter: 2006Q2

REPORT INFORMATION
  Report Type: 
  Country: None (occurrence: None)
  Receive Date: 20060622
  Receipt Date: 20060620
  Transmission Date: 20061013
  Serious: Yes (Hospitalization)
  Sender: FDA-Public Use
  Company Number: FR-GLAXOSMITHKLINE-B0428316A

PATIENT
  Age: 87 Year
  Sex: Female
  Weight: 53 kg

DRUGS (6)
  1. AUGMENTIN '125' [Suspect]
     Dosage: 2G PER DAY
     Route: 048
  2. CARDENSIEL [Suspect]
     Dosage: 1.25MG PER DAY
     Route: 048
  3. PREVISCAN [Suspect]
     Indication: PULMONARY EMBOLISM
     Dosage: 20MG PER DAY
     Route: 048
     Dates: end: 20060508
  4. TIAPRIDAL [Concomitant]
     Dosage: 100MG PER DAY
     Route: 048
  5. LASILIX [Concomitant]
     Dosage: 40MG PER DAY
     Route: 048
  6. TRIATEC [Concomitant]
     Dosage: 5MG PER DAY
     Route: 048

REACTIONS (7)
  - ANAEMIA [None]
  - DIZZINESS [None]
  - DRUG INTERACTION [None]
  - HYPOTENSION [None]
  - MYOGLOBIN BLOOD INCREASED [None]
  - RECTAL HAEMORRHAGE [None]
  - RENAL FAILURE ACUTE [None]
